FAERS Safety Report 16750901 (Version 1)
Quarter: 2019Q3

REPORT INFORMATION
  Report Type: Spontaneous
  Country: US (occurrence: US)
  Receive Date: 20190828
  Receipt Date: 20190828
  Transmission Date: 20191005
  Serious: No
  Sender: FDA-Public Use
  Company Number: US-009507513-1908USA010284

PATIENT
  Age: 23 Year
  Sex: Female
  Weight: 108.86 kg

DRUGS (1)
  1. NEXPLANON [Suspect]
     Active Substance: ETONOGESTREL
     Dosage: 1 ROD
     Route: 059

REACTIONS (4)
  - Product quality issue [Unknown]
  - Complication of device insertion [Unknown]
  - Device difficult to use [Unknown]
  - No adverse event [Unknown]

NARRATIVE: CASE EVENT DATE: 20190809
